FAERS Safety Report 10388239 (Version 2)
Quarter: 2014Q3

REPORT INFORMATION
  Report Type: Spontaneous
  Country: GB (occurrence: GB)
  Receive Date: 20140815
  Receipt Date: 20140905
  Transmission Date: 20150326
  Serious: Yes (Other)
  Sender: FDA-Public Use
  Company Number: GB-ELI_LILLY_AND_COMPANY-GB201408001191

PATIENT
  Age: 73 Year
  Sex: Female

DRUGS (9)
  1. GABAPENTIN. [Concomitant]
     Active Substance: GABAPENTIN
  2. INSULIN GLARGINE [Concomitant]
     Active Substance: INSULIN GLARGINE
  3. HUMALOG [Suspect]
     Active Substance: INSULIN LISPRO
     Indication: DIABETES MELLITUS
     Dosage: UNK
     Route: 065
     Dates: start: 2001
  4. MATRIFEN [Concomitant]
     Active Substance: FENTANYL
     Route: 062
  5. PARACETAMOL [Concomitant]
     Active Substance: ACETAMINOPHEN
  6. CYCLIZINE [Concomitant]
     Active Substance: CYCLIZINE
  7. FOLIC ACID. [Concomitant]
     Active Substance: FOLIC ACID
  8. GAVISCON                           /00237601/ [Concomitant]
     Active Substance: ALUMINUM HYDROXIDE\MAGNESIUM CARBONATE
  9. METHOTREXATE [Concomitant]
     Active Substance: METHOTREXATE

REACTIONS (2)
  - Hyperglycaemia [Recovered/Resolved]
  - Incorrect dose administered [Recovered/Resolved]

NARRATIVE: CASE EVENT DATE: 20140803
